FAERS Safety Report 6085006-1 (Version None)
Quarter: 2009Q1

REPORT INFORMATION
  Report Type: 
  Country: None (occurrence: None)
  Receive Date: 20090220
  Receipt Date: 20090211
  Transmission Date: 20090719
  Serious: Yes (Hospitalization, Other)
  Sender: FDA-Public Use
  Company Number: US-AMGEN-QUU293044

PATIENT
  Sex: Female
  Weight: 53.1 kg

DRUGS (8)
  1. ENBREL [Suspect]
     Indication: PSORIATIC ARTHROPATHY
     Route: 058
     Dates: start: 20080507, end: 20080715
  2. SIMETHICONE [Concomitant]
     Route: 048
  3. OMEPRAZOLE [Concomitant]
     Route: 048
  4. COZAAR [Concomitant]
     Route: 048
  5. ASPIRIN [Concomitant]
     Route: 048
  6. ESTRADIOL [Concomitant]
     Route: 048
  7. FLUTICASONE PROPIONATE [Concomitant]
     Route: 045
  8. CALCIUM WITH VITAMIN D [Concomitant]

REACTIONS (15)
  - ABDOMINAL DISTENSION [None]
  - ARTHROPATHY [None]
  - ASTHENIA [None]
  - BASAL CELL CARCINOMA [None]
  - BLOOD POTASSIUM DECREASED [None]
  - DEMYELINATION [None]
  - DIARRHOEA [None]
  - DYSPNOEA [None]
  - FATIGUE [None]
  - GASTRIC POLYPS [None]
  - MESENTERIC ARTERY STENOSIS [None]
  - MUSCULOSKELETAL CHEST PAIN [None]
  - PAIN IN EXTREMITY [None]
  - SPINAL OSTEOARTHRITIS [None]
  - SWELLING [None]
